FAERS Safety Report 7293709-6 (Version None)
Quarter: 2011Q1

REPORT INFORMATION
  Report Type: 
  Country: None (occurrence: None)
  Receive Date: 20110215
  Receipt Date: 20110207
  Transmission Date: 20110831
  Serious: Yes (Hospitalization)
  Sender: FDA-Public Use
  Company Number: B0699735A

PATIENT
  Sex: Male

DRUGS (4)
  1. AUGMENTIN '125' [Suspect]
     Indication: DERMO-HYPODERMITIS
     Dosage: 2TAB PER DAY
     Route: 048
     Dates: start: 20101220, end: 20101227
  2. ENALAPRIL MALEATE [Concomitant]
     Route: 048
  3. GENTAMICIN [Suspect]
     Indication: DERMO-HYPODERMITIS
     Dates: start: 20101220, end: 20101227
  4. NIFEDIPINE [Concomitant]
     Route: 048

REACTIONS (2)
  - PRURITUS [None]
  - RASH MACULO-PAPULAR [None]
